FAERS Safety Report 9279107 (Version 2)
Quarter: 2013Q3

REPORT INFORMATION
  Report Type: Spontaneous
  Country: BR (occurrence: BR)
  Receive Date: 20130508
  Receipt Date: 20130816
  Transmission Date: 20140515
  Serious: Yes (Other)
  Sender: FDA-Public Use
  Company Number: BR-ASTRAZENECA-2013SE30376

PATIENT
  Age: 64 Year
  Sex: Male
  Weight: 93 kg

DRUGS (6)
  1. ATENOL [Suspect]
     Route: 048
     Dates: start: 2000
  2. ATACAND [Suspect]
     Route: 048
     Dates: start: 2000, end: 201304
  3. ATACAND HCT [Suspect]
     Dosage: 16/12.5 MG QAM
     Route: 048
     Dates: start: 2000
  4. PANTOZOL [Concomitant]
     Indication: GASTRIC DISORDER
  5. SOMALGIN [Concomitant]
     Dates: start: 1991
  6. VYTORIN [Concomitant]
     Dosage: DAILY
     Dates: start: 2000

REACTIONS (2)
  - Vascular graft occlusion [Not Recovered/Not Resolved]
  - Angina pectoris [Not Recovered/Not Resolved]
